FAERS Safety Report 15418882 (Version 1)
Quarter: 2018Q3

REPORT INFORMATION
  Report Type: Spontaneous
  Country: US (occurrence: US)
  Receive Date: 20180914
  Receipt Date: 20180914
  Transmission Date: 20181010
  Serious: No
  Sender: FDA-Public Use
  Company Number: None

PATIENT
  Age: 46 Year
  Sex: Female

DRUGS (1)
  1. XELJANZ XR [Suspect]
     Active Substance: TOFACITINIB CITRATE
     Indication: RHEUMATOID ARTHRITIS
     Route: 048
     Dates: start: 20180822

REACTIONS (5)
  - Abdominal pain [None]
  - Malaise [None]
  - Migraine [None]
  - Diarrhoea [None]
  - Throat irritation [None]

NARRATIVE: CASE EVENT DATE: 201808
